FAERS Safety Report 9079823 (Version 1)
Quarter: 2013Q1

REPORT INFORMATION
  Report Type: Report from Study
  Country: US (occurrence: US)
  Receive Date: 20130130
  Receipt Date: 20130130
  Transmission Date: 20140127
  Serious: No
  Sender: FDA-Public Use
  Company Number: US-ABBOTT-12P-163-0965558-00

PATIENT
  Age: 70 Year
  Sex: Female

DRUGS (8)
  1. HUMIRA 40 MG/0.8 ML PEN [Suspect]
     Indication: PSORIATIC ARTHROPATHY
     Route: 058
     Dates: start: 200902
  2. NORVASC [Concomitant]
     Indication: HYPERTENSION
  3. ISOSORBIDE [Concomitant]
     Indication: ANGINA PECTORIS
  4. ZOLOFT [Concomitant]
     Indication: DEPRESSION
  5. NEURONTIN [Concomitant]
     Indication: NEURALGIA
  6. HYDROCHLOROTHIAZIDE [Concomitant]
     Indication: DIURETIC THERAPY
  7. CALCIUM + VITAMIN D [Concomitant]
     Indication: VITAMIN SUPPLEMENTATION
  8. ALBUTEROL [Concomitant]
     Indication: ASTHMA

REACTIONS (4)
  - Device malfunction [Recovered/Resolved]
  - Psoriasis [Recovered/Resolved]
  - Incorrect dose administered [Recovered/Resolved]
  - Injection site pain [Recovered/Resolved]
